FAERS Safety Report 4906208-0 (Version None)
Quarter: 2006Q1

REPORT INFORMATION
  Report Type: 
  Country: None (occurrence: None)
  Receive Date: 20060207
  Receipt Date: 20060126
  Transmission Date: 20060701
  Serious: Yes (Hospitalization)
  Sender: FDA-Public Use
  Company Number: GXKR2006PL00681

PATIENT
  Age: 12 Year
  Sex: Female

DRUGS (2)
  1. AMOKSIKLAV (NGX) (AMOXICILLIN, CLAVULANATE) [Suspect]
     Indication: UPPER RESPIRATORY TRACT INFECTION
     Dosage: ORAL
     Route: 048
     Dates: start: 20051101, end: 20051101
  2. AMOKSIKLAV (NGX) (AMOXICILLIN, CLAVULANATE) [Suspect]
     Indication: UPPER RESPIRATORY TRACT INFECTION
     Dosage: ORAL
     Route: 048

REACTIONS (8)
  - ABDOMINAL PAIN [None]
  - BILE DUCT OBSTRUCTION [None]
  - DYSPEPSIA [None]
  - GASTRITIS [None]
  - GASTROOESOPHAGEAL REFLUX DISEASE [None]
  - JAUNDICE CHOLESTATIC [None]
  - VOMITING [None]
  - WEIGHT DECREASED [None]
